FAERS Safety Report 6804233-6 (Version None)
Quarter: 2010Q2

REPORT INFORMATION
  Report Type: 
  Country: None (occurrence: None)
  Receive Date: 20100628
  Receipt Date: 20070202
  Transmission Date: 20101027
  Serious: No
  Sender: FDA-Public Use
  Company Number: US-PFIZER INC-2007010141

PATIENT
  Sex: Female
  Weight: 81.65 kg

DRUGS (3)
  1. XALATAN [Suspect]
     Indication: GLAUCOMA
  2. AZOPT [Concomitant]
  3. ANTI-DIABETICS [Concomitant]

REACTIONS (6)
  - BLOOD CHOLESTEROL INCREASED [None]
  - BLOOD GLUCOSE INCREASED [None]
  - EYE PRURITUS [None]
  - EYELASH THICKENING [None]
  - FOREIGN BODY SENSATION IN EYES [None]
  - HYPERTENSION [None]
